FAERS Safety Report 23076494 (Version 3)
Quarter: 2023Q4

REPORT INFORMATION
  Report Type: Spontaneous
  Country: US (occurrence: US)
  Receive Date: 20231017
  Receipt Date: 20231218
  Transmission Date: 20240109
  Serious: Yes (Other)
  Sender: FDA-Public Use
  Company Number: US-PFIZER INC-PV202300168886

PATIENT
  Age: 49 Year
  Sex: Female
  Weight: 70.307 kg

DRUGS (1)
  1. RUXIENCE [Suspect]
     Active Substance: RITUXIMAB-PVVR
     Indication: Systemic lupus erythematosus
     Dosage: UNK

REACTIONS (6)
  - Systemic lupus erythematosus [Unknown]
  - Weight decreased [Unknown]
  - Fatigue [Unknown]
  - Arthropathy [Unknown]
  - Malaise [Unknown]
  - Off label use [Unknown]
